FAERS Safety Report 8126022-5 (Version None)
Quarter: 2012Q1

REPORT INFORMATION
  Report Type: 
  Country: None (occurrence: None)
  Receive Date: 20120209
  Receipt Date: 20120110
  Transmission Date: 20120608
  Serious: No
  Sender: FDA-Public Use
  Company Number: US-BAUSCH-2012BL000195

PATIENT
  Age: 37 Year
  Sex: Male

DRUGS (6)
  1. LOTEMAX [Suspect]
     Indication: DERMATITIS
     Route: 047
     Dates: start: 20111226, end: 20111226
  2. LOTEMAX [Suspect]
     Indication: EYE IRRITATION
     Route: 047
     Dates: start: 20111226, end: 20111226
  3. LOTEMAX [Suspect]
     Indication: OFF LABEL USE
     Route: 047
     Dates: start: 20111226, end: 20111226
  4. LOTEMAX [Suspect]
     Route: 047
     Dates: start: 20111201, end: 20111201
  5. LOTEMAX [Suspect]
     Route: 047
     Dates: start: 20111201, end: 20111201
  6. LOTEMAX [Suspect]
     Route: 047
     Dates: start: 20111201, end: 20111201

REACTIONS (2)
  - DRUG HYPERSENSITIVITY [None]
  - EYE IRRITATION [None]
